FAERS Safety Report 4661688-3 (Version None)
Quarter: 2005Q2

REPORT INFORMATION
  Report Type: 
  Country: None (occurrence: None)
  Receive Date: 20050511
  Receipt Date: 20050511
  Transmission Date: 20051028
  Serious: Yes (Hospitalization)
  Sender: FDA-Public Use
  Company Number: None

PATIENT
  Age: 85 Year
  Sex: Male

DRUGS (5)
  1. FOSINOPRIL [Suspect]
     Indication: HYPERTENSION
     Dosage: 20 MG QD
     Dates: start: 20030201
  2. FUROSEMIDE [Suspect]
     Indication: HYPERTENSION
     Dosage: 40 MG QD
     Dates: start: 20050112
  3. POTASSIUM CHLORIDE [Suspect]
     Indication: SUBSTITUTION THERAPY
     Dosage: 8 MEQ QD
     Dates: start: 20050112
  4. GLIPIZIDE [Concomitant]
  5. ROSIGLITAZONE [Concomitant]

REACTIONS (2)
  - HYPERKALAEMIA [None]
  - RENAL FAILURE ACUTE [None]
